FAERS Safety Report 25122092 (Version 1)
Quarter: 2025Q1

REPORT INFORMATION
  Report Type: Spontaneous
  Country: SE (occurrence: SE)
  Receive Date: 20250326
  Receipt Date: 20250326
  Transmission Date: 20250409
  Serious: Yes (Death, Life-Threatening, Hospitalization, Other)
  Sender: AMGEN
  Company Number: None

PATIENT
  Age: 84 Year
  Sex: Female

DRUGS (3)
  1. TRASTUZUMAB [Suspect]
     Active Substance: TRASTUZUMAB
     Indication: HER2 positive breast cancer
     Route: 058
     Dates: start: 20241128, end: 20250109
  2. PERTUZUMAB [Suspect]
     Active Substance: PERTUZUMAB
     Indication: HER2 positive breast cancer
     Route: 058
     Dates: start: 20241128, end: 20250109
  3. PACLITAXEL [Suspect]
     Active Substance: PACLITAXEL
     Indication: HER2 positive breast cancer
     Route: 040
     Dates: start: 20241128, end: 20250109

REACTIONS (3)
  - Cardiac failure [Fatal]
  - Pneumonitis [Fatal]
  - Off label use [Unknown]

NARRATIVE: CASE EVENT DATE: 20250126
